FAERS Safety Report 9103370 (Version 1)
Quarter: 2013Q1

REPORT INFORMATION
  Report Type: Spontaneous
  Country: US (occurrence: US)
  Receive Date: 20130219
  Receipt Date: 20130219
  Transmission Date: 20140127
  Serious: No
  Sender: FDA-Public Use
  Company Number: US-PFIZER INC-2013060424

PATIENT
  Age: 57 Year
  Sex: Male
  Weight: 132 kg

DRUGS (6)
  1. CELEBREX [Suspect]
     Indication: ARTHRITIS
     Dosage: 200 MG, AS NEEDED
  2. NEURONTIN [Suspect]
     Indication: BURNING SENSATION
     Dosage: UNK
  3. ACTOPLUS MET [Suspect]
     Indication: DIABETES MELLITUS
     Dosage: 850/15 MG, UNK
  4. BYSTOLIC [Concomitant]
     Indication: BLOOD CHOLESTEROL ABNORMAL
     Dosage: 10 MG, UNK
  5. LISINOPRIL [Concomitant]
     Indication: BLOOD PRESSURE ABNORMAL
     Dosage: 40 MG, UNK
  6. METFORMIN [Concomitant]
     Dosage: 500MG DAILY

REACTIONS (3)
  - Drug ineffective [Not Recovered/Not Resolved]
  - Drug ineffective [Unknown]
  - Pain [Not Recovered/Not Resolved]
